FAERS Safety Report 8299141-0 (Version None)
Quarter: 2012Q2

REPORT INFORMATION
  Report Type: 
  Country: None (occurrence: None)
  Receive Date: 20120419
  Receipt Date: 20120412
  Transmission Date: 20120825
  Serious: Yes (Other)
  Sender: FDA-Public Use
  Company Number: KR-ABBOTT-12P-090-0924025-00

PATIENT
  Age: 23 Year
  Sex: Male
  Weight: 64 kg

DRUGS (13)
  1. ABC [Concomitant]
     Indication: ANTIRETROVIRAL THERAPY
     Route: 048
     Dates: start: 20100716
  2. CLARITHROMYCIN [Concomitant]
     Indication: TUBERCULOSIS
     Dosage: 500 MG DAILY
     Route: 048
     Dates: start: 20100507, end: 20100704
  3. ALLOPURINOL [Concomitant]
     Indication: HYPERURICAEMIA
     Route: 048
     Dates: start: 20100421, end: 20100730
  4. MYAMBUTOL [Concomitant]
     Indication: TUBERCULOSIS
     Dosage: 800 MG DAILY
     Route: 048
     Dates: start: 20100420
  5. 3TC/AZT [Concomitant]
     Indication: ANTIRETROVIRAL THERAPY
     Dosage: 2 TABLETS DAILY
     Route: 048
     Dates: start: 20100504, end: 20100715
  6. HANIL PYRAZINAMIDE [Concomitant]
     Indication: TUBERCULOSIS
     Dosage: 1500 MG DAILY
     Route: 048
     Dates: start: 20100120, end: 20100704
  7. KALETRA [Suspect]
     Indication: HIV INFECTION
     Route: 048
     Dates: start: 20100504
  8. PREDNISOLONE [Concomitant]
     Indication: ANTIINFLAMMATORY THERAPY
     Route: 048
     Dates: start: 20100504, end: 20100513
  9. LAMIVUDINE (EPIVIR HBV) [Concomitant]
     Indication: ANTIRETROVIRAL THERAPY
     Dosage: 300 MG DAILY
     Route: 048
     Dates: start: 20100716
  10. ZIDOVUDINE [Suspect]
     Indication: PRODUCT USED FOR UNKNOWN INDICATION
  11. ALLOPURINOL [Concomitant]
     Indication: DRUG THERAPY
  12. YUYU MYCOBUTIN [Concomitant]
     Indication: TUBERCULOSIS
     Dosage: 150 MG DAILY
     Route: 048
     Dates: start: 20100505
  13. CLOSERIN [Concomitant]
     Indication: TUBERCULOSIS
     Dosage: 500 MG DAILY
     Route: 048
     Dates: start: 20100504

REACTIONS (12)
  - PYREXIA [None]
  - PRURITUS [None]
  - RHINITIS [None]
  - SKIN DISORDER [None]
  - URTICARIA [None]
  - INFECTION [None]
  - CONVULSION [None]
  - CENTRAL NERVOUS SYSTEM LESION [None]
  - RHINORRHOEA [None]
  - HYPERLIPIDAEMIA [None]
  - LEUKOPENIA [None]
  - DIZZINESS [None]
